FAERS Safety Report 8510027-6 (Version None)
Quarter: 2012Q3

REPORT INFORMATION
  Report Type: 
  Country: None (occurrence: None)
  Receive Date: 20120713
  Receipt Date: 20120705
  Transmission Date: 20120928
  Serious: Yes (Hospitalization, Other)
  Sender: FDA-Public Use
  Company Number: FR-UCBSA-061173

PATIENT
  Age: 15 Year
  Sex: Male

DRUGS (6)
  1. TEMODAL [Concomitant]
     Dates: start: 20120406
  2. KEPPRA [Suspect]
     Indication: CONVULSION
     Route: 048
     Dates: start: 20120425, end: 20120101
  3. ERGY-EPUR [Interacting]
     Route: 048
     Dates: start: 20120616, end: 20120618
  4. TEMODAL [Concomitant]
     Dosage: UNKNOWN DOSE
     Dates: start: 20120224, end: 20120101
  5. ERGY-EPUR [Interacting]
     Indication: MEDICAL DIET
     Dosage: UNKNOWN DOSE
     Route: 048
     Dates: start: 20120616, end: 20120618
  6. BACTRIM DS [Concomitant]
     Dosage: UNKNOWN DOSE

REACTIONS (2)
  - EPILEPSY [None]
  - DRUG INTERACTION [None]
